FAERS Safety Report 8428086-8 (Version None)
Quarter: 2012Q2

REPORT INFORMATION
  Report Type: 
  Country: None (occurrence: None)
  Receive Date: 20120611
  Receipt Date: 20120229
  Transmission Date: 20120825
  Serious: No
  Sender: FDA-Public Use
  Company Number: US-ASTRAZENECA-2012SE14601

PATIENT
  Age: 78 Year
  Sex: Female

DRUGS (2)
  1. RHINOCORT [Suspect]
     Route: 045
  2. OXYBUTYNIN [Suspect]

REACTIONS (4)
  - INCONTINENCE [None]
  - DRY MOUTH [None]
  - TOOTH DISORDER [None]
  - TOOTH FRACTURE [None]
